FAERS Safety Report 25632743 (Version 1)
Quarter: 2025Q3

REPORT INFORMATION
  Report Type: Spontaneous
  Country: US (occurrence: US)
  Receive Date: 20250801
  Receipt Date: 20250801
  Transmission Date: 20251020
  Serious: Yes (Other)
  Sender: GRIFOLS
  Company Number: US-IGSA-BIG0032591

PATIENT
  Age: 21 Year
  Sex: Male

DRUGS (2)
  1. GAMUNEX-C [Suspect]
     Active Substance: HUMAN IMMUNOGLOBULIN G
     Indication: Pemphigoid
     Dosage: 120 GRAM, Q.4WK.
     Route: 042
     Dates: start: 20241219
  2. GAMUNEX-C [Suspect]
     Active Substance: HUMAN IMMUNOGLOBULIN G
     Indication: Product use in unapproved indication

REACTIONS (8)
  - Pyrexia [Unknown]
  - Headache [Unknown]
  - Nausea [Unknown]
  - Retching [Unknown]
  - Pain [Unknown]
  - Flushing [Unknown]
  - Swelling face [Unknown]
  - Meningitis aseptic [Unknown]

NARRATIVE: CASE EVENT DATE: 20241223
